FAERS Safety Report 4463073-6 (Version None)
Quarter: 2004Q3

REPORT INFORMATION
  Report Type: 
  Country: None (occurrence: None)
  Receive Date: 20040928
  Receipt Date: 20040913
  Transmission Date: 20050211
  Serious: Yes (Hospitalization)
  Sender: FDA-Public Use
  Company Number: 2004AL000132

PATIENT
  Age: 86 Year
  Sex: Female

DRUGS (6)
  1. SERAX (OXAZEPAM) TABLETS 25 MG (ALPHARMA) (SERA [Suspect]
     Dosage: PO
     Route: 048
     Dates: start: 20040606, end: 20040621
  2. ETIDRONATE DISODIUM [Suspect]
     Dates: end: 20040621
  3. FUNGIZONE [Suspect]
     Dosage: PO
     Route: 048
     Dates: end: 20040621
  4. LASILIX [Suspect]
     Dosage: PO
     Route: 048
     Dates: end: 20040625
  5. NEO-MERCAZOLE TAB [Suspect]
     Dosage: PO
     Route: 048
     Dates: end: 20040621
  6. RISPERDAL [Suspect]
     Dosage: 0.5 ML; QOD; PO
     Route: 048
     Dates: start: 20040606, end: 20040621

REACTIONS (1)
  - DEPRESSED LEVEL OF CONSCIOUSNESS [None]
